FAERS Safety Report 7074290-3 (Version None)
Quarter: 2010Q4

REPORT INFORMATION
  Report Type: 
  Country: None (occurrence: None)
  Receive Date: 20101029
  Receipt Date: 20101019
  Transmission Date: 20110411
  Serious: Yes (Other)
  Sender: FDA-Public Use
  Company Number: AU-MERCK-1010USA02175

PATIENT
  Age: 82 Year
  Sex: Female

DRUGS (2)
  1. FOSAMAX [Suspect]
     Route: 048
  2. GLUCOSAMINE [Concomitant]
     Route: 065

REACTIONS (2)
  - CHONDROPATHY [None]
  - FEMUR FRACTURE [None]
